FAERS Safety Report 4452125-2 (Version None)
Quarter: 2004Q3

REPORT INFORMATION
  Report Type: 
  Country: None (occurrence: None)
  Receive Date: 20040915
  Receipt Date: 20040915
  Transmission Date: 20050211
  Serious: Yes (Hospitalization, Disabling)
  Sender: FDA-Public Use
  Company Number: None

PATIENT
  Sex: Female
  Weight: 69.8539 kg

DRUGS (1)
  1. CLEOCIN [Suspect]
     Indication: TOOTH INFECTION
     Dates: start: 20001101

REACTIONS (10)
  - ABDOMINAL DISTENSION [None]
  - CLOSTRIDIUM COLITIS [None]
  - COELIAC DISEASE [None]
  - FAECAL INCONTINENCE [None]
  - FLATULENCE [None]
  - LACTOSE INTOLERANCE [None]
  - ROAD TRAFFIC ACCIDENT [None]
  - STRESS SYMPTOMS [None]
  - TEMPERATURE INTOLERANCE [None]
  - WEIGHT DECREASED [None]
